FAERS Safety Report 17005676 (Version 1)
Quarter: 2019Q4

REPORT INFORMATION
  Report Type: Spontaneous
  Country: GB (occurrence: GB)
  Receive Date: 20191107
  Receipt Date: 20191107
  Transmission Date: 20200122
  Serious: Yes (Life-Threatening, Hospitalization, Other)
  Sender: FDA-Public Use
  Company Number: GB-SA-2019SA299957

PATIENT
  Age: 17 Year
  Sex: Male

DRUGS (3)
  1. HYDROCORTISONE SALT NOT SPECIFIED [Suspect]
     Active Substance: HYDROCORTISONE
     Indication: CROHN^S DISEASE
     Route: 042
  2. METRONIDAZOLE. [Suspect]
     Active Substance: METRONIDAZOLE
     Indication: EVIDENCE BASED TREATMENT
     Route: 042
  3. CEFUROXIME. [Suspect]
     Active Substance: CEFUROXIME
     Indication: EVIDENCE BASED TREATMENT
     Route: 042

REACTIONS (14)
  - Haemolytic uraemic syndrome [Recovered/Resolved]
  - Diarrhoea haemorrhagic [Recovered/Resolved]
  - Abdominal tenderness [Recovered/Resolved]
  - Agitation [Recovered/Resolved]
  - Gastroenteritis Escherichia coli [Recovered/Resolved]
  - Focal dyscognitive seizures [Recovered/Resolved]
  - Pyrexia [Recovered/Resolved]
  - Acute kidney injury [Recovered/Resolved]
  - Unintentional use for unapproved indication [Unknown]
  - Anuria [Recovered/Resolved]
  - Disorientation [Recovered/Resolved]
  - Anaemia [Recovered/Resolved]
  - Thrombocytopenia [Recovered/Resolved]
  - Pain [Recovered/Resolved]
